FAERS Safety Report 5381040-5 (Version None)
Quarter: 2007Q3

REPORT INFORMATION
  Report Type: 
  Country: None (occurrence: None)
  Receive Date: 20070706
  Receipt Date: 20070629
  Transmission Date: 20080115
  Serious: Yes (Other)
  Sender: FDA-Public Use
  Company Number: US-ASTRAZENECA-2007UW15542

PATIENT
  Age: 58 Year
  Sex: Female
  Weight: 70.3 kg

DRUGS (4)
  1. ARIMIDEX [Suspect]
     Indication: BREAST CANCER FEMALE
     Route: 048
     Dates: start: 20060801
  2. FLUCEROCORT [Concomitant]
  3. WARFARIN SODIUM [Concomitant]
  4. ATENOLOL [Concomitant]

REACTIONS (2)
  - ATRIAL FIBRILLATION [None]
  - HOT FLUSH [None]
